FAERS Safety Report 6554414-4 (Version None)
Quarter: 2010Q1

REPORT INFORMATION
  Report Type: 
  Country: None (occurrence: None)
  Receive Date: 20100127
  Receipt Date: 20091012
  Transmission Date: 20100710
  Serious: Yes (Hospitalization)
  Sender: FDA-Public Use
  Company Number: US-SANOFI-AVENTIS-200918401US

PATIENT
  Age: 62 Year
  Sex: Male
  Weight: 113.4 kg

DRUGS (2)
  1. DESMOPRESSIN ACETATE [Suspect]
     Indication: HORMONE REPLACEMENT THERAPY
     Dosage: DOSE AS USED: UNK
     Route: 045
     Dates: start: 19890101
  2. NO MENTION OF CONCOMITANT DRUGS [Concomitant]

REACTIONS (2)
  - DRUG INEFFECTIVE [None]
  - HOSPITALISATION [None]
